FAERS Safety Report 23181276 (Version 1)
Quarter: 2023Q4

REPORT INFORMATION
  Report Type: Spontaneous
  Country: US (occurrence: US)
  Receive Date: 20231114
  Receipt Date: 20231114
  Transmission Date: 20240109
  Serious: Yes (Other)
  Sender: FDA-Public Use
  Company Number: US-HIKMA PHARMACEUTICALS USA INC.-US-H14001-23-66737

PATIENT
  Age: 34 Year
  Sex: Male

DRUGS (2)
  1. ESMOLOL [Suspect]
     Active Substance: ESMOLOL HYDROCHLORIDE
     Indication: Aortic dissection
     Dosage: MORE THAN 6 L OF ESMOLOL FORMULATED IN STERILE WATER OVER THE COURSE OF TWO DAYS
     Route: 041
  2. STERILE WATER [Suspect]
     Active Substance: WATER
     Indication: Aortic dissection
     Dosage: MORE THAN 6 L OF ESMOLOL FORMULATED IN STERILE WATER OVER THE COURSE OF TWO DAYS
     Route: 041

REACTIONS (2)
  - Hyponatraemia [Recovering/Resolving]
  - Seizure [Recovered/Resolved]
